FAERS Safety Report 9813950 (Version 3)
Quarter: 2014Q1

REPORT INFORMATION
  Report Type: Report from Study
  Country: US (occurrence: US)
  Receive Date: 20140113
  Receipt Date: 20140127
  Transmission Date: 20141002
  Serious: Yes (Hospitalization)
  Sender: FDA-Public Use
  Company Number: US-ACTELION-A-US2013-81666

PATIENT
  Age: 48 Year
  Sex: Female

DRUGS (2)
  1. VELETRI [Suspect]
     Indication: PULMONARY ARTERIAL HYPERTENSION
     Dosage: 6 NG/KG, PER MIN
     Route: 042
     Dates: start: 20030214
  2. COUMADIN [Concomitant]

REACTIONS (10)
  - Medication error [Unknown]
  - Fluid retention [Unknown]
  - Oedema peripheral [Unknown]
  - Localised oedema [Unknown]
  - Weight increased [Unknown]
  - Dyspnoea exertional [Unknown]
  - Dyspnoea [Unknown]
  - Device alarm issue [Recovered/Resolved]
  - Catheter site pruritus [Recovered/Resolved]
  - Blood culture negative [Recovered/Resolved]
